FAERS Safety Report 20869263 (Version 2)
Quarter: 2022Q2

REPORT INFORMATION
  Report Type: Spontaneous
  Country: FR (occurrence: FR)
  Receive Date: 20220524
  Receipt Date: 20220610
  Transmission Date: 20220721
  Serious: Yes (Disabling, Other)
  Sender: FDA-Public Use
  Company Number: FR-GE HEALTHCARE-2022CSU003258

PATIENT
  Age: 48 Year
  Sex: Female

DRUGS (4)
  1. GADOLINIUM [Suspect]
     Active Substance: GADOLINIUM
     Indication: Magnetic resonance imaging head
     Dosage: UNK, SINGLE
     Route: 051
  2. GADOLINIUM [Suspect]
     Active Substance: GADOLINIUM
     Indication: Inappropriate antidiuretic hormone secretion
  3. MYCOPHENOLATE MOFETIL [Concomitant]
     Active Substance: MYCOPHENOLATE MOFETIL
     Indication: Immunosuppressant drug therapy
     Dosage: 2 GM, QD
     Route: 065
  4. TACROLIMUS [Concomitant]
     Active Substance: TACROLIMUS
     Indication: Immunosuppressant drug therapy
     Dosage: 5 MG, QD
     Route: 065

REACTIONS (1)
  - Nephrogenic systemic fibrosis [Not Recovered/Not Resolved]
